FAERS Safety Report 4468155-0 (Version None)
Quarter: 2004Q3

REPORT INFORMATION
  Report Type: 
  Country: None (occurrence: None)
  Receive Date: 20040917
  Receipt Date: 20040520
  Transmission Date: 20050211
  Serious: No
  Sender: FDA-Public Use
  Company Number: US-JNJFOC-20040505427

PATIENT
  Age: 20 Year
  Sex: Female
  Weight: 49.8957 kg

DRUGS (2)
  1. ORTHO EVRA [Suspect]
     Indication: DYSMENORRHOEA
     Dosage: 1 DOSE(S), 3 IN 4 WEEK, TRANSDERMAL
     Route: 062
     Dates: start: 20030101
  2. ROBITUSSIN (GUAIFENESIN) [Concomitant]

REACTIONS (4)
  - APPLICATION SITE REACTION [None]
  - HEADACHE [None]
  - NAUSEA [None]
  - VOMITING [None]
